FAERS Safety Report 9419384 (Version 2)
Quarter: 2013Q3

REPORT INFORMATION
  Report Type: Spontaneous
  Country: US (occurrence: US)
  Receive Date: 20130725
  Receipt Date: 20130812
  Transmission Date: 20140515
  Serious: No
  Sender: FDA-Public Use
  Company Number: US-009507513-1307USA012139

PATIENT
  Age: 22 Year
  Sex: Female
  Weight: 56.69 kg

DRUGS (3)
  1. PEGINTRON [Suspect]
     Dosage: 80 MICROGRAM/0.5 ML, QW, REDIPEN
     Route: 058
     Dates: start: 201305
  2. REBETOL [Suspect]
  3. VICTRELIS [Suspect]

REACTIONS (4)
  - Memory impairment [Unknown]
  - Headache [Unknown]
  - Drug dose omission [Unknown]
  - Product packaging quantity issue [Unknown]
